FAERS Safety Report 5649730-4 (Version None)
Quarter: 2008Q1

REPORT INFORMATION
  Report Type: 
  Country: None (occurrence: None)
  Receive Date: 20080304
  Receipt Date: 20080226
  Transmission Date: 20080703
  Serious: Yes (Hospitalization)
  Sender: FDA-Public Use
  Company Number: NL-BOEHRINGER INGELHEIM GMBH, GERMANY-2008-DE-01213GD

PATIENT

DRUGS (3)
  1. IPRATROPIUM BROMIDE [Suspect]
     Indication: ASTHMA
     Dosage: 2 DOSES OF 0.25 MG IF {4 YEARS OLD, 2 DOSES OF 0.5 MG IF }/=4 YEARS OLD
     Route: 055
  2. ALBUTEROL [Suspect]
     Indication: ASTHMA
     Dosage: 2 DOSES OF 2.5 MG IF {4 YEARS OLD, 2 DOSES OF 5 MG IF }/=4 YEARS OLD
     Route: 055
  3. RECOMBINANT HUMAN DEOXYRIBONUCLEASE [Suspect]
     Indication: ASTHMA
     Route: 055

REACTIONS (2)
  - ASTHMA [None]
  - DRUG INEFFECTIVE [None]
